FAERS Safety Report 4356155-0 (Version None)
Quarter: 2004Q2

REPORT INFORMATION
  Report Type: 
  Country: None (occurrence: None)
  Receive Date: 20040506
  Receipt Date: 20040427
  Transmission Date: 20050107
  Serious: Yes (Life-Threatening, Hospitalization)
  Sender: FDA-Public Use
  Company Number: ZONI001405

PATIENT
  Age: 59 Year
  Sex: Female

DRUGS (5)
  1. EXCEGRAN (ZONISAMIDE) [Suspect]
     Indication: CONVULSION PROPHYLAXIS
     Dosage: 200 MG DAILY ORAL
     Route: 048
     Dates: start: 20031015, end: 20031118
  2. BETAMETHASONE [Concomitant]
  3. LENDORM [Concomitant]
  4. NORVASC [Concomitant]
  5. ADAPTINOL (XANTOFYL PALMITATE) [Concomitant]

REACTIONS (2)
  - ONYCHOMADESIS [None]
  - STEVENS-JOHNSON SYNDROME [None]
